FAERS Safety Report 9270153 (Version 1)
Quarter: 2013Q2

REPORT INFORMATION
  Report Type: Spontaneous
  Country: CO (occurrence: CO)
  Receive Date: 20130503
  Receipt Date: 20130503
  Transmission Date: 20140414
  Serious: Yes (Death)
  Sender: FDA-Public Use
  Company Number: CO-JNJFOC-20130500367

PATIENT
  Age: 76 Year
  Sex: Male

DRUGS (1)
  1. REMINYL [Suspect]
     Indication: SENILE DEMENTIA
     Route: 048
     Dates: start: 20120530, end: 20130412

REACTIONS (2)
  - Respiratory arrest [Fatal]
  - Off label use [Unknown]
